FAERS Safety Report 5086123-5 (Version None)
Quarter: 2006Q3

REPORT INFORMATION
  Report Type: 
  Country: None (occurrence: None)
  Receive Date: 20060818
  Receipt Date: 20060803
  Transmission Date: 20061208
  Serious: No
  Sender: FDA-Public Use
  Company Number: 2005-132768-NL

PATIENT
  Age: 48 Year
  Sex: Male

DRUGS (5)
  1. MIRTAZAPINE [Suspect]
     Indication: DEPRESSION
     Dosage: 15 MG/30 MG/45 MG/30 MG/ 15/MG
     Route: 048
     Dates: start: 20050531, end: 20050606
  2. MIRTAZAPINE [Suspect]
     Indication: DEPRESSION
     Dosage: 15 MG/30 MG/45 MG/30 MG/ 15/MG
     Route: 048
     Dates: start: 20050607, end: 20050613
  3. MIRTAZAPINE [Suspect]
     Indication: DEPRESSION
     Dosage: 15 MG/30 MG/45 MG/30 MG/ 15/MG
     Route: 048
     Dates: start: 20050614, end: 20050620
  4. MIRTAZAPINE [Suspect]
     Indication: DEPRESSION
     Dosage: 15 MG/30 MG/45 MG/30 MG/ 15/MG
     Route: 048
     Dates: start: 20050621, end: 20050725
  5. MIRTAZAPINE [Suspect]
     Indication: DEPRESSION
     Dosage: 15 MG/30 MG/45 MG/30 MG/ 15/MG
     Route: 048
     Dates: start: 20050726, end: 20060530

REACTIONS (4)
  - MALAISE [None]
  - NASOPHARYNGITIS [None]
  - SINUS BRADYCARDIA [None]
  - SOMNOLENCE [None]
